FAERS Safety Report 7138669-3 (Version None)
Quarter: 2010Q4

REPORT INFORMATION
  Report Type: 
  Country: None (occurrence: None)
  Receive Date: 20101206
  Receipt Date: 20101201
  Transmission Date: 20110411
  Serious: Yes (Other)
  Sender: FDA-Public Use
  Company Number: US-MERCK-1010USA03360

PATIENT
  Age: 21 Year
  Sex: Male

DRUGS (2)
  1. SINGULAIR [Suspect]
     Indication: ASTHMA
     Route: 048
     Dates: start: 20100924, end: 20101015
  2. DULERA TABLET [Concomitant]
     Route: 065

REACTIONS (2)
  - HALLUCINATION [None]
  - SUICIDAL IDEATION [None]
